FAERS Safety Report 9140302 (Version 2)
Quarter: 2013Q3

REPORT INFORMATION
  Report Type: Spontaneous
  Country: ES (occurrence: ES)
  Receive Date: 20130305
  Receipt Date: 20130708
  Transmission Date: 20140515
  Serious: Yes (Hospitalization)
  Sender: FDA-Public Use
  Company Number: ES-ASTRAZENECA-2013SE14167

PATIENT
  Sex: Male
  Weight: 3.2 kg

DRUGS (3)
  1. SYNAGIS [Suspect]
     Indication: ANTIVIRAL PROPHYLAXIS
     Dosage: FIRST DOSE
     Route: 030
     Dates: start: 20130117, end: 20130117
  2. SYNAGIS [Suspect]
     Indication: ANTIVIRAL PROPHYLAXIS
     Route: 030
     Dates: start: 20130214, end: 20130214
  3. SYNAGIS [Suspect]
     Indication: ANTIVIRAL PROPHYLAXIS
     Route: 030
     Dates: start: 20130314, end: 20130314

REACTIONS (4)
  - Bronchiolitis [Unknown]
  - Parainfluenzae virus infection [Unknown]
  - Rotavirus infection [Unknown]
  - Enterovirus infection [Unknown]
